FAERS Safety Report 9477486 (Version 2)
Quarter: 2013Q4

REPORT INFORMATION
  Report Type: Spontaneous
  Country: CH (occurrence: CH)
  Receive Date: 20130827
  Receipt Date: 20131021
  Transmission Date: 20140711
  Serious: Yes (Hospitalization, Other)
  Sender: FDA-Public Use
  Company Number: CH-009507513-1308CHE009765

PATIENT
  Age: 64 Year
  Sex: Female

DRUGS (15)
  1. FOSAMAX [Suspect]
     Indication: OSTEOPOROSIS
     Dosage: 70 MG, QW
     Route: 048
     Dates: start: 200503, end: 200705
  2. PROLIA [Suspect]
     Indication: OSTEOPOROSIS
     Dosage: 60 MG, Q6M (ONCE PER 6 MONTHS)
     Route: 058
     Dates: start: 201112, end: 20130301
  3. ACLASTA [Suspect]
     Indication: OSTEOPOROSIS
     Dosage: 5 MG, UNK (1 PER 1 YEAR)
     Route: 042
     Dates: start: 200905, end: 201104
  4. BONVIVA [Suspect]
     Indication: OSTEOPOROSIS
     Dosage: 3 MG, UNK91 PER 3 MONTHS)
     Route: 042
     Dates: start: 200705, end: 200803
  5. CHOLECALCIFEROL [Concomitant]
     Indication: OSTEOPOROSIS
     Dosage: 300000 IU, 1 PER 1 TOTAL
     Dates: start: 201303, end: 201303
  6. CALCIMAGON D3 [Concomitant]
     Indication: OSTEOPOROSIS
  7. CLEXANE (ENOXAPARIN SODIUM) [Concomitant]
     Dosage: 40 MG, 1 PER 1 DAY(S)
  8. MOTILIUM [Concomitant]
     Dosage: 10 MG, TID
  9. NEXIUM [Concomitant]
     Dosage: 40 MG, QD
  10. GYNO-TARDYFERON [Concomitant]
     Dosage: 1 DF, QD
  11. SUPRADYN [Concomitant]
     Dosage: 1 DF, QD
  12. DAFALGAN [Concomitant]
     Dosage: 1 G, TID
  13. LIVIAL [Concomitant]
     Dosage: 2.5 MG, QD
     Route: 048
  14. OMEGA-3 [Concomitant]
     Dosage: 1 DF, QD
  15. SIRDALUD [Concomitant]
     Dosage: 2 MG, BID
     Route: 048

REACTIONS (1)
  - Impaired healing [Not Recovered/Not Resolved]
